FAERS Safety Report 8795512 (Version 1)
Quarter: 2012Q4

REPORT INFORMATION
  Report Type: 
  Country: JP (occurrence: JP)
  Receive Date: 20120918
  Receipt Date: 20120918
  Transmission Date: 20130627
  Serious: Yes (Hospitalization)
  Sender: FDA-Public Use
  Company Number: JP-009507513-1208JPN009827

PATIENT

DRUGS (2)
  1. TEMODAL [Suspect]
     Indication: GLIOBLASTOMA
     Dosage: 75 mg, sqm
     Route: 048
     Dates: start: 201208, end: 201208
  2. DIAGNOSTIC RADIOPHARMACEUTICAL (UNSPECIFIED) [Concomitant]
     Dosage: Combination treatment

REACTIONS (3)
  - Pneumonia [Recovered/Resolved]
  - Interstitial lung disease [Unknown]
  - Pneumocystis jiroveci pneumonia [Unknown]
